FAERS Safety Report 7490617-2 (Version None)
Quarter: 2011Q2

REPORT INFORMATION
  Report Type: 
  Country: None (occurrence: None)
  Receive Date: 20110519
  Receipt Date: 20110511
  Transmission Date: 20111010
  Serious: Yes (Hospitalization)
  Sender: FDA-Public Use
  Company Number: FR-BRISTOL-MYERS SQUIBB COMPANY-15739717

PATIENT
  Age: 89 Year
  Sex: Male

DRUGS (12)
  1. CALCIUM CARBONATE [Concomitant]
     Route: 048
  2. ZOLPIDEM [Concomitant]
     Route: 048
  3. LOVENOX [Concomitant]
     Route: 058
     Dates: start: 20110323
  4. MEMANTINE HYDROCHLORIDE [Concomitant]
     Indication: DEMENTIA ALZHEIMER'S TYPE
     Route: 048
     Dates: start: 20110324
  5. ACETAMINOPHEN [Concomitant]
     Route: 048
     Dates: start: 20110401
  6. GAVISCON [Concomitant]
     Dosage: LONGTIME
     Route: 048
  7. TAMSULOSIN HCL [Suspect]
     Dosage: MECIR LP
     Route: 048
     Dates: start: 20110322
  8. INDAPAMIDE [Suspect]
     Indication: HYPERTENSION
     Route: 048
     Dates: start: 20101201, end: 20110331
  9. COLCHICINE [Concomitant]
     Indication: GOUT
     Route: 048
     Dates: start: 20110331
  10. IRBESARTAN [Suspect]
     Indication: HYPERTENSION
     Dosage: 1 DF = 1 TABS
     Route: 048
     Dates: start: 20110401
  11. LAROSCORBINE [Concomitant]
     Dosage: LONGTIME
     Route: 048
  12. TRANSIPEG [Concomitant]
     Dosage: LONGTIME
     Route: 048

REACTIONS (3)
  - HYPOTENSION [None]
  - DIZZINESS [None]
  - LOSS OF CONSCIOUSNESS [None]
